FAERS Safety Report 7045083-8 (Version None)
Quarter: 2010Q3

REPORT INFORMATION
  Report Type: 
  Country: None (occurrence: None)
  Receive Date: 20100929
  Receipt Date: 20100609
  Transmission Date: 20110219
  Serious: No
  Sender: FDA-Public Use
  Company Number: US-WYE-H15613210

PATIENT
  Age: 58 Year
  Sex: Female
  Weight: 68.1 kg

DRUGS (1)
  1. PRISTIQ [Suspect]
     Indication: DEPRESSION
     Dosage: 50 MG 1X PER 1 DAY
     Dates: start: 20100607

REACTIONS (2)
  - HYPERSOMNIA [None]
  - LETHARGY [None]
